FAERS Safety Report 9218994 (Version 1)
Quarter: 2013Q2

REPORT INFORMATION
  Report Type: Spontaneous
  Country: CO (occurrence: CO)
  Receive Date: 20130409
  Receipt Date: 20130409
  Transmission Date: 20140414
  Serious: Yes (Hospitalization)
  Sender: FDA-Public Use
  Company Number: CO-PFIZER INC-2013111413

PATIENT
  Age: 65 Year
  Sex: Female

DRUGS (1)
  1. NORVAS [Suspect]
     Indication: BLOOD PRESSURE
     Dosage: 5 MG, UNK
     Route: 048

REACTIONS (3)
  - Accident [Unknown]
  - Face injury [Unknown]
  - Respiratory disorder [Not Recovered/Not Resolved]
